FAERS Safety Report 10071947 (Version 1)
Quarter: 2014Q2

REPORT INFORMATION
  Report Type: Spontaneous
  Country: FR (occurrence: FR)
  Receive Date: 20140411
  Receipt Date: 20140411
  Transmission Date: 20141212
  Serious: Yes (Hospitalization)
  Sender: FDA-Public Use
  Company Number: FR-ROCHE-1379365

PATIENT
  Age: 56 Year
  Sex: Male

DRUGS (8)
  1. MABTHERA [Suspect]
     Indication: PRODUCT USED FOR UNKNOWN INDICATION
     Route: 041
     Dates: start: 20110215, end: 20140225
  2. CISPLATINE MYLAN [Suspect]
     Indication: PRODUCT USED FOR UNKNOWN INDICATION
     Route: 041
     Dates: start: 20140225
  3. CYTARABINE [Suspect]
     Indication: PRODUCT USED FOR UNKNOWN INDICATION
     Route: 041
     Dates: start: 20140226
  4. CHLORAMINOPHENE [Concomitant]
     Route: 065
     Dates: start: 20110215, end: 20110908
  5. BENDAMUSTINE [Concomitant]
     Route: 065
     Dates: start: 20130225, end: 20130716
  6. UROREC [Concomitant]
     Route: 065
  7. ROCEPHINE [Concomitant]
  8. CIPROFLOXACINE [Concomitant]

REACTIONS (6)
  - Ototoxicity [Not Recovered/Not Resolved]
  - Parosmia [Not Recovered/Not Resolved]
  - Dysgeusia [Not Recovered/Not Resolved]
  - Nystagmus [Not Recovered/Not Resolved]
  - Renal failure [Recovering/Resolving]
  - Pancytopenia [Not Recovered/Not Resolved]
